FAERS Safety Report 12574953 (Version 2)
Quarter: 2017Q2

REPORT INFORMATION
  Report Type: Spontaneous
  Country: US (occurrence: US)
  Receive Date: 20160720
  Receipt Date: 20170623
  Transmission Date: 20170830
  Serious: No
  Sender: FDA-Public Use
  Company Number: US-ASTELLAS-2015US039127

PATIENT
  Sex: Female

DRUGS (1)
  1. VESICARE [Suspect]
     Active Substance: SOLIFENACIN SUCCINATE
     Indication: ENTEROVESICAL FISTULA
     Route: 048
     Dates: start: 20130712

REACTIONS (2)
  - Dry mouth [Unknown]
  - Off label use [Unknown]
